FAERS Safety Report 7020756-1 (Version None)
Quarter: 2010Q3

REPORT INFORMATION
  Report Type: 
  Country: None (occurrence: None)
  Receive Date: 20100929
  Receipt Date: 20100921
  Transmission Date: 20110219
  Serious: Yes (Other)
  Sender: FDA-Public Use
  Company Number: CN-JNJFOC-20100906765

PATIENT
  Age: 69 Year
  Sex: Male

DRUGS (2)
  1. DAKTARIN [Suspect]
     Route: 061
  2. DAKTARIN [Suspect]
     Indication: PRURITUS
     Dosage: 20G, QUANTITY SUFFICIENT, EVERY DAY, AD. US. EXT
     Route: 061

REACTIONS (3)
  - HYPERAEMIA [None]
  - PIGMENTATION DISORDER [None]
  - PRIAPISM [None]
